FAERS Safety Report 4320029-1 (Version None)
Quarter: 2004Q1

REPORT INFORMATION
  Report Type: 
  Country: None (occurrence: None)
  Receive Date: 20040319
  Receipt Date: 20040114
  Transmission Date: 20041129
  Serious: Yes (Death)
  Sender: FDA-Public Use
  Company Number: WAES 0401BEL00005

PATIENT
  Age: 61 Year
  Sex: Female
  Weight: 75 kg

DRUGS (6)
  1. CANCIDAS [Suspect]
     Indication: FUNGAL INFECTION
     Route: 042
     Dates: start: 20030815, end: 20030918
  2. FLUCONAZOLE [Concomitant]
     Indication: PROPHYLAXIS
     Route: 041
     Dates: start: 20030802, end: 20030814
  3. SOLU-CORTEF [Concomitant]
     Indication: HYPOTENSION
     Route: 042
     Dates: start: 20030821, end: 20030827
  4. SOLU-CORTEF [Concomitant]
     Indication: ADRENOCORTICAL INSUFFICIENCY CHRONIC
     Route: 042
     Dates: start: 20030821, end: 20030827
  5. SPORANOX [Concomitant]
     Indication: TRICHOSPORON INFECTION
     Route: 042
     Dates: start: 20030828, end: 20030910
  6. VORICONAZOLE [Concomitant]
     Indication: GEOTRICHUM INFECTION
     Route: 041
     Dates: start: 20030910, end: 20030922

REACTIONS (5)
  - DRUG INEFFECTIVE [None]
  - FUNGAL INFECTION [None]
  - GENERAL PHYSICAL HEALTH DETERIORATION [None]
  - MULTI-ORGAN FAILURE [None]
  - SEPTIC SHOCK [None]
